FAERS Safety Report 15294953 (Version 1)
Quarter: 2018Q3

REPORT INFORMATION
  Report Type: Spontaneous
  Country: US (occurrence: US)
  Receive Date: 20180807
  Receipt Date: 20180807
  Transmission Date: 20181010
  Serious: Yes (Disabling)
  Sender: FDA-Public Use
  Company Number: None

PATIENT
  Age: 40 Year
  Sex: Female
  Weight: 103.5 kg

DRUGS (2)
  1. CIPROFLOXACIN HCL [Suspect]
     Active Substance: CIPROFLOXACIN HYDROCHLORIDE
     Indication: KIDNEY INFECTION
     Dosage: ?          QUANTITY:1 DF DOSAGE FORM;?
     Route: 048
     Dates: start: 20180802, end: 20180806
  2. JUICE PLUS VITAMINS [Concomitant]

REACTIONS (6)
  - Insomnia [None]
  - Cardiac disorder [None]
  - Panic attack [None]
  - Disturbance in attention [None]
  - Hypopnoea [None]
  - Impaired work ability [None]
